FAERS Safety Report 8962855 (Version 1)
Quarter: 2012Q4

REPORT INFORMATION
  Report Type: Report from Study
  Country: CA (occurrence: CA)
  Receive Date: 20121214
  Receipt Date: 20121214
  Transmission Date: 20130627
  Serious: Yes (Death, Hospitalization)
  Sender: FDA-Public Use
  Company Number: CA-JNJFOC-20120912680

PATIENT
  Sex: Male
  Weight: 92 kg

DRUGS (8)
  1. REMICADE [Suspect]
     Indication: RHEUMATOID ARTHRITIS
     Route: 042
     Dates: start: 20100224
  2. METHOTREXATE [Concomitant]
     Route: 048
  3. LIPITOR [Concomitant]
     Route: 065
  4. DIOVAN [Concomitant]
     Route: 065
  5. PREDNISONE [Concomitant]
     Route: 065
  6. METFORMIN [Concomitant]
     Route: 065
  7. CALTRATE WITH VITAMIN D [Concomitant]
     Route: 065
  8. AMITRIPTYLINE [Concomitant]
     Route: 065

REACTIONS (3)
  - Death [Fatal]
  - Clostridium difficile infection [Unknown]
  - Pneumonia [Unknown]
